FAERS Safety Report 7501916-X (Version None)
Quarter: 2011Q2

REPORT INFORMATION
  Report Type: 
  Country: None (occurrence: None)
  Receive Date: 20110523
  Receipt Date: 20110523
  Transmission Date: 20111010
  Serious: Yes (Hospitalization)
  Sender: FDA-Public Use
  Company Number: None

PATIENT
  Age: 55 Year
  Sex: Male
  Weight: 129.2752 kg

DRUGS (1)
  1. ISOSORBIDE MONONITRATE [Suspect]
     Indication: ANGINA PECTORIS
     Dosage: 60MG 1 PER DAY ORAL 1600
     Route: 048
     Dates: start: 20110415

REACTIONS (5)
  - VISION BLURRED [None]
  - DIPLOPIA [None]
  - VERTIGO [None]
  - VOMITING [None]
  - DIZZINESS [None]
